FAERS Safety Report 9926118 (Version 2)
Quarter: 2014Q1

REPORT INFORMATION
  Report Type: Spontaneous
  Country: US (occurrence: US)
  Receive Date: 20140226
  Receipt Date: 20140227
  Transmission Date: 20141002
  Serious: Yes (Life-Threatening)
  Sender: FDA-Public Use
  Company Number: CHPA2014US003077

PATIENT
  Sex: Female

DRUGS (1)
  1. THERAFLU UNKNOWN [Suspect]
     Indication: NASOPHARYNGITIS
     Route: 048

REACTIONS (2)
  - Feeling abnormal [Unknown]
  - Nasopharyngitis [Unknown]
